FAERS Safety Report 4851218-5 (Version None)
Quarter: 2005Q4

REPORT INFORMATION
  Report Type: 
  Country: None (occurrence: None)
  Receive Date: 20051208
  Receipt Date: 20051117
  Transmission Date: 20060501
  Serious: Yes (Other)
  Sender: FDA-Public Use
  Company Number: US 0510122826

PATIENT
  Age: 76 Year
  Sex: Female

DRUGS (2)
  1. FORTEO [Suspect]
     Dosage: SUBCUTANEOUS
     Route: 058
     Dates: start: 20030801, end: 20050801
  2. FORTEO [Concomitant]

REACTIONS (1)
  - ADENOCARCINOMA PANCREAS [None]
